FAERS Safety Report 17666163 (Version 15)
Quarter: 2020Q4

REPORT INFORMATION
  Report Type: Report from Study
  Country: DK (occurrence: DK)
  Receive Date: 20200414
  Receipt Date: 20201225
  Transmission Date: 20210113
  Serious: Yes (Hospitalization)
  Sender: FDA-Public Use
  Company Number: DK-ROCHE-2576915

PATIENT
  Age: 49 Year
  Sex: Female
  Weight: 62 kg

DRUGS (42)
  1. CETIRIZIN [Concomitant]
     Active Substance: CETIRIZINE HYDROCHLORIDE
     Dates: start: 20200319
  2. PARACETAMOL [Concomitant]
     Active Substance: ACETAMINOPHEN
     Route: 048
     Dates: start: 20200318, end: 20200318
  3. SULFAMETHOXAZOLE/TRIMETHOPRIM [Concomitant]
     Active Substance: SULFAMETHOXAZOLE\TRIMETHOPRIM
     Dates: start: 20181116, end: 20200228
  4. CETIRIZIN [Concomitant]
     Active Substance: CETIRIZINE HYDROCHLORIDE
     Route: 048
     Dates: start: 20200422, end: 20200422
  5. CETIRIZIN [Concomitant]
     Active Substance: CETIRIZINE HYDROCHLORIDE
     Dates: start: 20200305
  6. CETIRIZIN [Concomitant]
     Active Substance: CETIRIZINE HYDROCHLORIDE
     Route: 048
     Dates: start: 20200304, end: 20200304
  7. CETIRIZIN [Concomitant]
     Active Substance: CETIRIZINE HYDROCHLORIDE
     Route: 048
     Dates: start: 20200318, end: 20200318
  8. FEXOFENADINE [Concomitant]
     Active Substance: FEXOFENADINE HYDROCHLORIDE
     Indication: URTICARIA
     Dates: start: 20150122, end: 20200228
  9. CETIRIZIN [Concomitant]
     Active Substance: CETIRIZINE HYDROCHLORIDE
     Route: 048
     Dates: start: 20200513, end: 20200513
  10. CETIRIZIN [Concomitant]
     Active Substance: CETIRIZINE HYDROCHLORIDE
     Route: 048
     Dates: start: 20200603, end: 20200603
  11. SOLU-MEDROL [Concomitant]
     Active Substance: METHYLPREDNISOLONE SODIUM SUCCINATE
     Route: 042
     Dates: start: 20200513, end: 20200513
  12. PARACETAMOL [Concomitant]
     Active Substance: ACETAMINOPHEN
     Route: 048
     Dates: start: 20200513, end: 20200513
  13. INNOHEP [Concomitant]
     Active Substance: TINZAPARIN SODIUM
     Indication: DEEP VEIN THROMBOSIS
     Dates: start: 20200511, end: 20200624
  14. RO7082859 (CD20/C3 T-CELL BISPECIFIC MAB) [Suspect]
     Active Substance: GLOFITAMAB
     Indication: B-CELL LYMPHOMA
     Dosage: DATE OF MOST RECENT DOSE OF RO7082859 PRIOR TO AE/SAE ONSET 18/MAR/20 AT 11:33 10 MG (END TIME: 3:29
     Route: 042
     Dates: start: 20200226
  15. MALONETTA [Concomitant]
     Active Substance: ETHINYL ESTRADIOL\LEVONORGESTREL
     Indication: CONTRACEPTION
     Dates: start: 20160926
  16. FRAGMIN [Concomitant]
     Active Substance: DALTEPARIN SODIUM
     Indication: THROMBOSIS PROPHYLAXIS
     Dates: start: 20171009
  17. PARACETAMOL [Concomitant]
     Active Substance: ACETAMINOPHEN
     Route: 048
     Dates: start: 20190423
  18. XARELTO [Concomitant]
     Active Substance: RIVAROXABAN
     Indication: DEEP VEIN THROMBOSIS
     Dates: start: 20200624
  19. PNEUMOVAX 23 [Concomitant]
     Active Substance: PNEUMOCOCCAL VACCINE, POLYVALENT 23
     Dates: start: 20190301, end: 20200405
  20. OBINUTUZUMAB. [Suspect]
     Active Substance: OBINUTUZUMAB
     Indication: B-CELL LYMPHOMA
     Dosage: MOST RECENT DOSE 19/FEB/2020 AT 12:01 PM (END TIME: 4:59 PM)?OBINUTUZUMAB WILL BE ADMINISTERED ONCE,
     Route: 042
     Dates: start: 20200219
  21. MACROGOL [Concomitant]
     Active Substance: POLYETHYLENE GLYCOLS
     Indication: CONSTIPATION
     Dates: start: 20200405
  22. SOLU-MEDROL [Concomitant]
     Active Substance: METHYLPREDNISOLONE SODIUM SUCCINATE
     Route: 042
     Dates: start: 20200422, end: 20200422
  23. CETIRIZIN [Concomitant]
     Active Substance: CETIRIZINE HYDROCHLORIDE
     Indication: RASH
     Dates: start: 20200228
  24. SOLU-MEDROL [Concomitant]
     Active Substance: METHYLPREDNISOLONE SODIUM SUCCINATE
     Route: 042
     Dates: start: 20200219, end: 20200603
  25. PARACETAMOL [Concomitant]
     Active Substance: ACETAMINOPHEN
     Route: 048
     Dates: start: 20200422, end: 20200422
  26. PARACETAMOL [Concomitant]
     Active Substance: ACETAMINOPHEN
     Route: 048
     Dates: start: 20200304, end: 20200304
  27. PARACETAMOL [Concomitant]
     Active Substance: ACETAMINOPHEN
     Route: 048
     Dates: start: 20200603, end: 20200603
  28. LOCOID [Concomitant]
     Active Substance: HYDROCORTISONE BUTYRATE
     Indication: RASH
     Dates: start: 20200306, end: 20200306
  29. MOMETASONFUROAT [Concomitant]
     Indication: RHINORRHOEA
     Dates: start: 20181116, end: 20200228
  30. OLOPATADINE. [Concomitant]
     Active Substance: OLOPATADINE
     Dates: start: 20190617, end: 20200228
  31. CELECOXIB. [Concomitant]
     Active Substance: CELECOXIB
     Dates: start: 20190423, end: 20200228
  32. SOLU-MEDROL [Concomitant]
     Active Substance: METHYLPREDNISOLONE SODIUM SUCCINATE
     Route: 042
     Dates: start: 20200318, end: 20200318
  33. SOLU-MEDROL [Concomitant]
     Active Substance: METHYLPREDNISOLONE SODIUM SUCCINATE
     Route: 042
     Dates: start: 20200304, end: 20200304
  34. SOLU-MEDROL [Concomitant]
     Active Substance: METHYLPREDNISOLONE SODIUM SUCCINATE
     Route: 042
     Dates: start: 20200603, end: 20200603
  35. DALTEPARIN [Concomitant]
     Active Substance: DALTEPARIN
  36. RIVAROXABAN [Concomitant]
     Active Substance: RIVAROXABAN
     Dates: start: 20171102
  37. ATEZOLIZUMAB. [Suspect]
     Active Substance: ATEZOLIZUMAB
     Indication: B-CELL LYMPHOMA
     Dosage: MOST RECENT DOSE 17/MAR/2020 AT 10:15 AM (END TIME:11:20 AM)?ATEZOLIZUMAB WILL BE ADMINISTERED IN CO
     Route: 041
     Dates: start: 20200317
  38. CETIRIZIN [Concomitant]
     Active Substance: CETIRIZINE HYDROCHLORIDE
     Route: 048
     Dates: start: 20200226, end: 20200226
  39. CETIRIZIN [Concomitant]
     Active Substance: CETIRIZINE HYDROCHLORIDE
     Dates: start: 20200305
  40. SOLU-MEDROL [Concomitant]
     Active Substance: METHYLPREDNISOLONE SODIUM SUCCINATE
     Route: 042
     Dates: start: 20200226, end: 20200226
  41. PARACETAMOL [Concomitant]
     Active Substance: ACETAMINOPHEN
     Route: 048
     Dates: start: 20200226, end: 20200226
  42. SALBUTAMOL [Concomitant]
     Active Substance: ALBUTEROL
     Indication: BRONCHOSPASM
     Dates: start: 20181116, end: 20200228

REACTIONS (2)
  - Radiculopathy [Not Recovered/Not Resolved]
  - Upper respiratory tract infection [Recovered/Resolved]

NARRATIVE: CASE EVENT DATE: 20200327
